FAERS Safety Report 7683261-5 (Version None)
Quarter: 2011Q3

REPORT INFORMATION
  Report Type: 
  Country: None (occurrence: None)
  Receive Date: 20110815
  Receipt Date: 20110727
  Transmission Date: 20111222
  Serious: Yes (Death, Hospitalization)
  Sender: FDA-Public Use
  Company Number: US-GLAXOSMITHKLINE-A0760988A

PATIENT
  Age: 46 Year
  Sex: Male
  Weight: 102.3 kg

DRUGS (2)
  1. AVANDIA [Suspect]
     Indication: TYPE 2 DIABETES MELLITUS
     Dosage: 8MG PER DAY
     Route: 048
     Dates: start: 19981101, end: 20010816
  2. INSULIN [Concomitant]
     Dates: start: 19980101, end: 20010801

REACTIONS (2)
  - CORONARY ARTERY INSUFFICIENCY [None]
  - MYOCARDIAL INFARCTION [None]
